FAERS Safety Report 11480467 (Version 1)
Quarter: 2015Q3

REPORT INFORMATION
  Report Type: Spontaneous
  Country: CH (occurrence: CH)
  Receive Date: 20150909
  Receipt Date: 20150909
  Transmission Date: 20151125
  Serious: Yes (Hospitalization)
  Sender: FDA-Public Use
  Company Number: CH-PFIZER INC-2015291677

PATIENT
  Age: 21 Year
  Sex: Female

DRUGS (3)
  1. EPANUTIN [Suspect]
     Active Substance: PHENYTOIN SODIUM
     Indication: EPILEPSY
     Dosage: 2-3 TIMES 0.1 DAILY
     Dates: start: 1944
  2. EPANUTIN [Suspect]
     Active Substance: PHENYTOIN SODIUM
     Dosage: 3 TIMES 0.1
  3. EPANUTIN [Suspect]
     Active Substance: PHENYTOIN SODIUM
     Dosage: 5 TIMES 0.1

REACTIONS (2)
  - Pancytopenia [Recovered/Resolved]
  - Bone marrow toxicity [Unknown]

NARRATIVE: CASE EVENT DATE: 1948
